FAERS Safety Report 19114234 (Version 3)
Quarter: 2021Q3

REPORT INFORMATION
  Report Type: Spontaneous
  Country: CA (occurrence: CA)
  Receive Date: 20210408
  Receipt Date: 20210824
  Transmission Date: 20211014
  Serious: Yes (Life-Threatening, Hospitalization, Disabling, Other)
  Sender: FDA-Public Use
  Company Number: CA-009507513-2104CAN001400

PATIENT
  Age: 56 Year
  Sex: Female
  Weight: 69 kg

DRUGS (37)
  1. ASPIRINE [Suspect]
     Active Substance: ASPIRIN
     Dosage: DOSAGE FORM NOT SPECIFIED, 80 MILLIGRAM, UNK
     Route: 065
  2. ESOMEPRAZOLE MAGNESIUM. [Suspect]
     Active Substance: ESOMEPRAZOLE MAGNESIUM
     Indication: PRODUCT USED FOR UNKNOWN INDICATION
     Dosage: 40 MILLIGRAM 1 EVERY 1 DAY
     Route: 048
  3. NORVASC [Suspect]
     Active Substance: AMLODIPINE BESYLATE
     Indication: PRODUCT USED FOR UNKNOWN INDICATION
     Dosage: 5 MILLIGRAM, 1 EVERY 1 DAY
     Route: 048
  4. RASILEZ [Suspect]
     Active Substance: ALISKIREN
     Indication: HYPERTENSION
     Dosage: UNK
     Route: 048
  5. RASILEZ [Suspect]
     Active Substance: ALISKIREN
     Dosage: UNK
     Route: 048
  6. LIPITOR [Suspect]
     Active Substance: ATORVASTATIN CALCIUM
     Indication: PRODUCT USED FOR UNKNOWN INDICATION
     Dosage: 20 MILLIGRAM, 1 EVERY 1 DAY
     Route: 048
  7. NORVASC [Suspect]
     Active Substance: AMLODIPINE BESYLATE
     Dosage: UNK
     Route: 048
  8. RASILEZ [Suspect]
     Active Substance: ALISKIREN
     Dosage: UNK
     Route: 048
  9. RASILEZ [Suspect]
     Active Substance: ALISKIREN
     Dosage: UNK
     Route: 048
  10. ASPIRINE [Suspect]
     Active Substance: ASPIRIN
     Dosage: DOSAGE FORM NOT SPECIFIED, 80 MILLIGRAM 1 EVERY 1 DAY
     Route: 048
  11. RASILEZ [Suspect]
     Active Substance: ALISKIREN
     Dosage: 150 MILLIGRAM 1 EVERY 1 DAY
     Route: 048
  12. JANUVIA [Suspect]
     Active Substance: SITAGLIPTIN PHOSPHATE
     Indication: PRODUCT USED FOR UNKNOWN INDICATION
     Dosage: 100 MILLIGRAM 1 EVERY 1 DAY
     Route: 048
  13. ASPIRINE [Suspect]
     Active Substance: ASPIRIN
     Indication: PRODUCT USED FOR UNKNOWN INDICATION
     Dosage: DOSAGE FORM NOT SPECIFIED, 80 MILLIGRAM 1 EVERY 1 DAY
     Route: 048
  14. IRBESARTAN. [Suspect]
     Active Substance: IRBESARTAN
     Indication: HYPERTENSION
     Dosage: UNK
     Route: 048
  15. RASILEZ [Suspect]
     Active Substance: ALISKIREN
     Dosage: UNK
     Route: 048
  16. RASILEZ [Suspect]
     Active Substance: ALISKIREN
     Dosage: UNK
     Route: 048
  17. RASILEZ [Suspect]
     Active Substance: ALISKIREN
     Dosage: UNK
     Route: 048
  18. ASA [Concomitant]
     Active Substance: ASPIRIN
     Indication: PRODUCT USED FOR UNKNOWN INDICATION
     Dosage: 80 MILLIGRAM
  19. ASPIRINE [Suspect]
     Active Substance: ASPIRIN
     Indication: PRODUCT USED FOR UNKNOWN INDICATION
     Dosage: 80 MILLIGRAM, QD
     Route: 048
  20. IRBESARTAN. [Suspect]
     Active Substance: IRBESARTAN
     Indication: HYPERTENSION
     Dosage: 300 MILLIGRAM, QD
     Route: 048
  21. METFORMIN HYDROCHLORIDE. [Suspect]
     Active Substance: METFORMIN HYDROCHLORIDE
     Indication: PRODUCT USED FOR UNKNOWN INDICATION
     Dosage: UNK
     Route: 048
  22. RASILEZ [Suspect]
     Active Substance: ALISKIREN
     Dosage: UNK
     Route: 048
  23. ESOMEPRAZOLE. [Concomitant]
     Active Substance: ESOMEPRAZOLE MAGNESIUM
     Indication: PRODUCT USED FOR UNKNOWN INDICATION
     Dosage: 40 MILLIGRAM
     Route: 065
  24. RASILEZ [Suspect]
     Active Substance: ALISKIREN
     Indication: HYPERTENSION
     Dosage: UNK
     Route: 048
  25. RASILEZ [Suspect]
     Active Substance: ALISKIREN
     Dosage: 150 MILLIGRAM 1 EVERY 1 DAY
     Route: 048
  26. METFORMIN HYDROCHLORIDE. [Suspect]
     Active Substance: METFORMIN HYDROCHLORIDE
     Dosage: 850 MILLIGRAM, TID
     Route: 048
  27. RASILEZ [Suspect]
     Active Substance: ALISKIREN
     Dosage: UNK
     Route: 048
  28. RASILEZ [Suspect]
     Active Substance: ALISKIREN
     Dosage: UNK
     Route: 048
  29. RASILEZ [Suspect]
     Active Substance: ALISKIREN
     Dosage: UNK
     Route: 048
  30. RASILEZ [Suspect]
     Active Substance: ALISKIREN
     Dosage: UNK
     Route: 048
  31. ASA [Concomitant]
     Active Substance: ASPIRIN
     Dosage: DOSAGE FORM NOT SPECIFIED
  32. RASILEZ [Suspect]
     Active Substance: ALISKIREN
     Indication: MICROALBUMINURIA
     Dosage: UNK
     Route: 048
  33. RASILEZ [Suspect]
     Active Substance: ALISKIREN
     Dosage: UNK
     Route: 048
  34. RASILEZ [Suspect]
     Active Substance: ALISKIREN
     Indication: MICROALBUMINURIA
     Dosage: UNK
     Route: 048
  35. AVAPRO [Concomitant]
     Active Substance: IRBESARTAN
     Dosage: 1 DOSAGE FORM
     Route: 065
  36. METFORMIN [Concomitant]
     Active Substance: METFORMIN HYDROCHLORIDE
     Dosage: UNK
     Route: 065
  37. CYANOCOBALAMIN. [Concomitant]
     Active Substance: CYANOCOBALAMIN
     Dosage: 1 DOSAGE FORM
     Route: 048

REACTIONS (23)
  - Affect lability [Recovered/Resolved with Sequelae]
  - Carotid artery thrombosis [Recovered/Resolved with Sequelae]
  - Fall [Recovered/Resolved with Sequelae]
  - Confusional state [Recovered/Resolved with Sequelae]
  - Eating disorder [Recovered/Resolved with Sequelae]
  - Aphasia [Recovered/Resolved with Sequelae]
  - Hemiplegia [Recovered/Resolved with Sequelae]
  - Impaired work ability [Recovered/Resolved with Sequelae]
  - Nausea [Recovered/Resolved with Sequelae]
  - Neurologic neglect syndrome [Recovered/Resolved with Sequelae]
  - Cerebrovascular accident [Recovered/Resolved with Sequelae]
  - Muscular weakness [Recovered/Resolved with Sequelae]
  - Personality disorder [Recovered/Resolved with Sequelae]
  - Dysphagia [Recovered/Resolved with Sequelae]
  - Adjustment disorder [Recovered/Resolved with Sequelae]
  - Asthenia [Recovered/Resolved with Sequelae]
  - Coordination abnormal [Recovered/Resolved with Sequelae]
  - Dysarthria [Recovered/Resolved with Sequelae]
  - Sensory loss [Recovered/Resolved with Sequelae]
  - Anxiety [Recovered/Resolved with Sequelae]
  - Hemiparesis [Recovered/Resolved with Sequelae]
  - Motor dysfunction [Recovered/Resolved with Sequelae]
  - Muscle spasticity [Recovered/Resolved with Sequelae]
